FAERS Safety Report 10744136 (Version 2)
Quarter: 2015Q1

REPORT INFORMATION
  Report Type: Spontaneous
  Country: US (occurrence: US)
  Receive Date: 20150128
  Receipt Date: 20150218
  Transmission Date: 20150721
  Serious: No
  Sender: FDA-Public Use
  Company Number: US-BAYER-2015-008787

PATIENT
  Age: 42 Year
  Sex: Female

DRUGS (2)
  1. MIRENA [Suspect]
     Active Substance: LEVONORGESTREL
     Indication: CONTRACEPTION
     Dosage: 20 MCG/24HR, CONT
     Route: 015
     Dates: start: 201306, end: 20150127
  2. ATIVAN [Concomitant]
     Active Substance: LORAZEPAM

REACTIONS (11)
  - Pain [Recovered/Resolved]
  - Menstrual disorder [Not Recovered/Not Resolved]
  - Dysmenorrhoea [None]
  - Menorrhagia [Recovered/Resolved]
  - Impaired driving ability [Not Recovered/Not Resolved]
  - Feeling abnormal [Not Recovered/Not Resolved]
  - Dizziness [Not Recovered/Not Resolved]
  - Breast pain [None]
  - Activities of daily living impaired [Not Recovered/Not Resolved]
  - Weight decreased [None]
  - Weight increased [None]

NARRATIVE: CASE EVENT DATE: 201306
